FAERS Safety Report 7311125-5 (Version None)
Quarter: 2011Q1

REPORT INFORMATION
  Report Type: 
  Country: None (occurrence: None)
  Receive Date: 20110224
  Receipt Date: 20110222
  Transmission Date: 20110831
  Serious: Yes (Other)
  Sender: FDA-Public Use
  Company Number: CO-ROCHE-751945

PATIENT
  Sex: Male

DRUGS (2)
  1. COPEGUS [Suspect]
     Indication: HEPATITIS C
     Dosage: FREQUENCY:QD
     Route: 048
     Dates: start: 20100421
  2. PEGASYS [Suspect]
     Indication: HEPATITIS C
     Dosage: FREQUENCY:QWEEK
     Route: 058
     Dates: start: 20100421

REACTIONS (4)
  - ARTHRALGIA [None]
  - DYSPNOEA [None]
  - ABDOMINAL PAIN [None]
  - OEDEMA [None]
